FAERS Safety Report 11893970 (Version 1)
Quarter: 2016Q1

REPORT INFORMATION
  Report Type: Spontaneous
  Country: US (occurrence: US)
  Receive Date: 20160107
  Receipt Date: 20160107
  Transmission Date: 20160526
  Serious: No
  Sender: FDA-Public Use
  Company Number: US-AMGEN-USASP2016000171

PATIENT
  Age: 53 Year
  Sex: Male

DRUGS (3)
  1. ENBREL [Suspect]
     Active Substance: ETANERCEPT
     Indication: PRODUCT USED FOR UNKNOWN INDICATION
     Dosage: UNK
     Route: 065
     Dates: start: 201512
  2. HUMIRA [Concomitant]
     Active Substance: ADALIMUMAB
     Dosage: UNK
  3. ORENCIA [Concomitant]
     Active Substance: ABATACEPT
     Dosage: UNK

REACTIONS (7)
  - Productive cough [Unknown]
  - Sputum discoloured [Unknown]
  - Secretion discharge [Unknown]
  - Abdominal discomfort [Unknown]
  - Adverse drug reaction [Unknown]
  - Hyperhidrosis [Unknown]
  - Sneezing [Unknown]
